FAERS Safety Report 17758825 (Version 1)
Quarter: 2020Q2

REPORT INFORMATION
  Report Type: Report from Study
  Country: None (occurrence: RO)
  Receive Date: 20200507
  Receipt Date: 20200507
  Transmission Date: 20200714
  Serious: Yes (Death, Disabling, Other)
  Sender: FDA-Public Use
  Company Number: RO-ABBVIE-20K-135-3391813-00

PATIENT
  Age: 62 Year
  Sex: Female

DRUGS (1)
  1. DUODOPA [Suspect]
     Active Substance: CARBIDOPA\LEVODOPA
     Indication: PARKINSON^S DISEASE
     Dosage: DM=13.00??DC=4.10??ED=2.00??NRED=0;??DMN=0.00??DCN=2.30??EDN=2.30??NREDN=0
     Route: 050
     Dates: start: 20150117, end: 20200502

REACTIONS (5)
  - Coma [Not Recovered/Not Resolved]
  - Balance disorder [Not Recovered/Not Resolved]
  - Decreased appetite [Not Recovered/Not Resolved]
  - Cardio-respiratory arrest [Fatal]
  - Confusional state [Not Recovered/Not Resolved]

NARRATIVE: CASE EVENT DATE: 20200428
